FAERS Safety Report 8252996-8 (Version None)
Quarter: 2012Q2

REPORT INFORMATION
  Report Type: 
  Country: None (occurrence: None)
  Receive Date: 20120402
  Receipt Date: 20120323
  Transmission Date: 20120825
  Serious: Yes (Hospitalization)
  Sender: FDA-Public Use
  Company Number: US-MERCK-1103USA00832

PATIENT
  Age: 53 Year
  Sex: Female

DRUGS (5)
  1. FOSAMAX [Suspect]
     Indication: OSTEOPENIA
     Route: 048
     Dates: start: 19980101, end: 20090701
  2. ALENDRONATE SODIUM [Suspect]
     Indication: OSTEOPENIA
     Route: 048
     Dates: start: 20080201
  3. CALCIUM (UNSPECIFIED) AND VITAMIN D (UNSPECIFIED) [Concomitant]
     Indication: OSTEOPENIA
     Route: 065
     Dates: start: 20030101
  4. VITAMINS (UNSPECIFIED) [Concomitant]
     Indication: OSTEOPENIA
     Route: 065
     Dates: start: 20030101
  5. FOSAMAX [Suspect]
     Route: 048
     Dates: start: 20090813, end: 20100301

REACTIONS (10)
  - HYPERCHOLESTEROLAEMIA [None]
  - OSTEOPOROSIS [None]
  - WRIST FRACTURE [None]
  - LIGAMENT SPRAIN [None]
  - FRACTURE NONUNION [None]
  - ARTHRITIS [None]
  - ROAD TRAFFIC ACCIDENT [None]
  - FEMUR FRACTURE [None]
  - FRACTURE [None]
  - FALL [None]
